FAERS Safety Report 18031935 (Version 1)
Quarter: 2020Q3

REPORT INFORMATION
  Report Type: Spontaneous
  Country: US (occurrence: US)
  Receive Date: 20200716
  Receipt Date: 20200716
  Transmission Date: 20201103
  Serious: Yes (Hospitalization, Disabling, Other)
  Sender: FDA-Public Use
  Company Number: None

PATIENT
  Age: 50 Year
  Sex: Female
  Weight: 56.25 kg

DRUGS (11)
  1. TIZANIDINE. [Concomitant]
     Active Substance: TIZANIDINE
  2. IRON CHEWABLE [Concomitant]
  3. LEVOFLOXACIN. [Suspect]
     Active Substance: LEVOFLOXACIN
     Indication: KIDNEY INFECTION
     Dosage: ?          QUANTITY:14 TABLET(S);?
     Route: 048
     Dates: start: 20200121, end: 20200204
  4. SEROQUEL [Concomitant]
     Active Substance: QUETIAPINE FUMARATE
  5. CETIRIZINE [Concomitant]
     Active Substance: CETIRIZINE HYDROCHLORIDE
  6. ENBREL [Concomitant]
     Active Substance: ETANERCEPT
  7. MONTELUKAST [Concomitant]
     Active Substance: MONTELUKAST SODIUM
  8. CALCIUM CITRATE WITH VITAMIN D + MAGNNESIUM [Concomitant]
  9. PRAMIPEXOLE. [Concomitant]
     Active Substance: PRAMIPEXOLE
  10. LEVOTHYROXINE. [Concomitant]
     Active Substance: LEVOTHYROXINE
  11. VITAMIN D [Concomitant]
     Active Substance: VITAMIN D NOS

REACTIONS (12)
  - Myalgia [None]
  - Herpes zoster [None]
  - Middle insomnia [None]
  - Mania [None]
  - Erythromelalgia [None]
  - Joint noise [None]
  - Inflammation [None]
  - Musculoskeletal stiffness [None]
  - Insomnia [None]
  - Psychotic disorder [None]
  - Skin fissures [None]
  - Skin warm [None]

NARRATIVE: CASE EVENT DATE: 20200121
